APPROVED DRUG PRODUCT: POTASSIUM CHLORIDE 20MEQ
Active Ingredient: POTASSIUM CHLORIDE
Strength: 1.49GM/100ML
Dosage Form/Route: INJECTABLE;INJECTION
Application: A211087 | Product #005 | TE Code: AP
Applicant: FRESENIUS KABI USA LLC
Approved: May 7, 2021 | RLD: No | RS: No | Type: RX